FAERS Safety Report 6802971-2 (Version None)
Quarter: 2010Q2

REPORT INFORMATION
  Report Type: 
  Country: None (occurrence: None)
  Receive Date: 20100628
  Receipt Date: 20100615
  Transmission Date: 20101027
  Serious: Yes (Hospitalization, Other)
  Sender: FDA-Public Use
  Company Number: PHHY2010JP36528

PATIENT
  Sex: Female
  Weight: 56 kg

DRUGS (6)
  1. TEGRETOL [Suspect]
     Indication: EPILEPSY
     Dosage: 200 MG, TID
     Route: 048
     Dates: start: 20091130
  2. TEGRETOL [Suspect]
     Indication: DIABETIC NEUROPATHY
     Dosage: 100 MG, TID
     Dates: start: 20091215, end: 20100102
  3. LUVOX [Concomitant]
     Dosage: UNK
     Route: 048
     Dates: start: 20091207, end: 20100102
  4. ROHYPNOL [Concomitant]
     Dosage: UNK
     Route: 048
     Dates: start: 20091204, end: 20100102
  5. DAISAIKOTO [Concomitant]
     Dosage: UNK
     Route: 048
     Dates: start: 20091217, end: 20100101
  6. ROKUMI-GAN [Concomitant]
     Dosage: UNK
     Route: 048
     Dates: start: 20091217, end: 20100102

REACTIONS (10)
  - DRUG ERUPTION [None]
  - DRUG RASH WITH EOSINOPHILIA AND SYSTEMIC SYMPTOMS [None]
  - EOSINOPHIL COUNT INCREASED [None]
  - GAMMA-GLUTAMYLTRANSFERASE INCREASED [None]
  - HUMAN HERPES VIRUS 6 SEROLOGY POSITIVE [None]
  - LIVEDO RETICULARIS [None]
  - LYMPHOCYTE STIMULATION TEST POSITIVE [None]
  - RASH GENERALISED [None]
  - SKIN EXFOLIATION [None]
  - URTICARIA [None]
